FAERS Safety Report 7567692 (Version 3)
Quarter: 2012Q4

REPORT INFORMATION
  Report Type: 
  Country: US (occurrence: US)
  Receive Date: 20100831
  Receipt Date: 20120918
  Transmission Date: 20130627
  Serious: Yes (Hospitalization, Other)
  Sender: FDA-Public Use
  Company Number: US-ELI_LILLY_AND_COMPANY-US201008006024

PATIENT
  Age: 68 None
  Sex: Female
  Weight: 87.3 kg

DRUGS (6)
  1. HUMULIN NPH [Suspect]
     Indication: TYPE 2 DIABETES MELLITUS
     Dosage: UNK, 3/D
     Dates: start: 1994, end: 2010
  2. HUMULIN NPH [Suspect]
     Dosage: 24 u, other
     Dates: start: 20100819
  3. HUMULIN NPH [Suspect]
     Dosage: 100 u, qd
     Dates: start: 2010
  4. HUMULIN NPH [Suspect]
     Dosage: 60 u, qd
  5. ALLOPURINOL [Concomitant]
  6. ANTIHYPERTENSIVES [Concomitant]
     Indication: HYPERTENSION

REACTIONS (6)
  - Renal cancer [Recovered/Resolved]
  - Breast cancer [Unknown]
  - Drug ineffective [Unknown]
  - Blood glucose increased [Unknown]
  - Gout [Unknown]
  - Weight decreased [Not Recovered/Not Resolved]
